FAERS Safety Report 13065473 (Version 1)
Quarter: 2016Q4

REPORT INFORMATION
  Report Type: Spontaneous
  Country: US (occurrence: US)
  Receive Date: 20161227
  Receipt Date: 20161227
  Transmission Date: 20170207
  Serious: Yes (Hospitalization, Other)
  Sender: FDA-Public Use
  Company Number: US-BAYER-2016-243436

PATIENT
  Age: 13 Year
  Sex: Female

DRUGS (2)
  1. CLOPIDOGREL [Interacting]
     Active Substance: CLOPIDOGREL BISULFATE
     Indication: VASCULAR PSEUDOANEURYSM
     Dosage: 75 MG, UNK
  2. ACETYLSALICYLIC ACID (} 100 MG) [Suspect]
     Active Substance: ASPIRIN
     Indication: VASCULAR PSEUDOANEURYSM
     Dosage: 81 MG, UNK

REACTIONS (4)
  - Drug interaction [None]
  - Epistaxis [Recovered/Resolved]
  - Labelled drug-drug interaction medication error [None]
  - Off label use [None]
